FAERS Safety Report 25521911 (Version 1)
Quarter: 2025Q3

REPORT INFORMATION
  Report Type: Spontaneous
  Country: US (occurrence: US)
  Receive Date: 20250706
  Receipt Date: 20250706
  Transmission Date: 20251020
  Serious: Yes (Other)
  Sender: BRISTOL-MYERS SQUIBB COMPANY
  Company Number: US-BRISTOL-MYERS SQUIBB COMPANY-2025-089601

PATIENT
  Sex: Female

DRUGS (1)
  1. ELIQUIS [Suspect]
     Active Substance: APIXABAN
     Indication: Atrial fibrillation
     Dates: start: 2021

REACTIONS (5)
  - Cerebrovascular accident [Unknown]
  - Device related thrombosis [Unknown]
  - Rash macular [Unknown]
  - Post procedural stroke [Unknown]
  - Thrombosis [Unknown]
